FAERS Safety Report 17140516 (Version 1)
Quarter: 2019Q4

REPORT INFORMATION
  Report Type: Spontaneous
  Country: US (occurrence: US)
  Receive Date: 20191211
  Receipt Date: 20191211
  Transmission Date: 20200122
  Serious: No
  Sender: FDA-Public Use
  Company Number: US-UCBSA-2016008840

PATIENT
  Age: 56 Year
  Sex: Female
  Weight: 105 kg

DRUGS (15)
  1. MIDAZOLAM [Concomitant]
     Active Substance: MIDAZOLAM HYDROCHLORIDE
     Dosage: MULTIPLE BOLOUS DOSES
     Route: 042
  2. KETAMINE [Concomitant]
     Active Substance: KETAMINE
     Indication: STATUS EPILEPTICUS
     Dosage: INFUSION AT 0.1 MG/KG PER HOUR
  3. PENTOBARBITAL. [Concomitant]
     Active Substance: PENTOBARBITAL
     Dosage: WEANED BY 0.25 MG/KG PER HOUR EVERY 6 HOURS
     Route: 042
  4. MIDAZOLAM [Concomitant]
     Active Substance: MIDAZOLAM HYDROCHLORIDE
     Dosage: 10 MG/H (0.1 MG/KG PER HOUR)
     Route: 042
  5. PENTOBARBITAL. [Concomitant]
     Active Substance: PENTOBARBITAL
     Dosage: TITRATED UP TO 2 MG/KG PER HOUR
     Route: 042
  6. PHENOBARBITAL. [Concomitant]
     Active Substance: PHENOBARBITAL
     Indication: STATUS EPILEPTICUS
     Dosage: 1760 MG (20 MG/KG)
     Route: 042
  7. MIDAZOLAM [Concomitant]
     Active Substance: MIDAZOLAM HYDROCHLORIDE
     Dosage: TITRATION TO 20 MG/H WITH TITRATION TO 20 MG/H (0.2 MG/KG PER HOUR, TOTALING 50 MG)
  8. VALPROIC ACID. [Concomitant]
     Active Substance: VALPROIC ACID
     Dosage: 500 MG IV EVERY 8 HOURS
     Route: 042
  9. LEVETIRACETAM. [Suspect]
     Active Substance: LEVETIRACETAM
     Indication: OFF LABEL USE
  10. MIDAZOLAM [Concomitant]
     Active Substance: MIDAZOLAM HYDROCHLORIDE
     Indication: STATUS EPILEPTICUS
     Dosage: 10 MG
     Route: 042
  11. PENTOBARBITAL. [Concomitant]
     Active Substance: PENTOBARBITAL
     Indication: STATUS EPILEPTICUS
     Dosage: INFUSION AT 0.86 MG/KG PER HOUR
     Route: 042
  12. CEFEPIME [Concomitant]
     Active Substance: CEFEPIME HYDROCHLORIDE
     Indication: PRODUCT USED FOR UNKNOWN INDICATION
     Dosage: UNKNOWN DOSE
  13. LEVETIRACETAM. [Suspect]
     Active Substance: LEVETIRACETAM
     Indication: STATUS EPILEPTICUS
     Dosage: 2 G, 2X/DAY (BID)
     Route: 042
  14. PENTOBARBITAL. [Concomitant]
     Active Substance: PENTOBARBITAL
     Dosage: SECOND LOADING DOSE OF 440 MG IV
     Route: 042
  15. VALPROIC ACID. [Concomitant]
     Active Substance: VALPROIC ACID
     Indication: STATUS EPILEPTICUS
     Dosage: 1720 MG (20 MG/KG)
     Route: 042

REACTIONS (1)
  - No adverse event [Unknown]
